FAERS Safety Report 20462653 (Version 1)
Quarter: 2022Q1

REPORT INFORMATION
  Report Type: Report from Study
  Country: JP (occurrence: JP)
  Receive Date: 20220211
  Receipt Date: 20220211
  Transmission Date: 20220424
  Serious: Yes (Other)
  Sender: FDA-Public Use
  Company Number: JP-JNJFOC-20220213259

PATIENT

DRUGS (1)
  1. TRACLEER [Suspect]
     Active Substance: BOSENTAN
     Indication: Skin ulcer
     Dosage: BOSENTAN HYDRATE:62.5MG
     Route: 048

REACTIONS (2)
  - Pancytopenia [Unknown]
  - Scleroderma associated digital ulcer [Unknown]
